FAERS Safety Report 4829794-8 (Version None)
Quarter: 2005Q4

REPORT INFORMATION
  Report Type: 
  Country: None (occurrence: None)
  Receive Date: 20051028
  Receipt Date: 20050629
  Transmission Date: 20060501
  Serious: No
  Sender: FDA-Public Use
  Company Number: COT_0116_2005

PATIENT
  Age: 40 Year
  Sex: Female
  Weight: 93.8946 kg

DRUGS (2)
  1. VENTAVIS [Suspect]
     Indication: PULMONARY HYPERTENSION
     Dosage: 5 MCG VARIABLE IH
     Route: 055
  2. TRACLEER [Suspect]
     Indication: PULMONARY HYPERTENSION
     Dosage: 250 MG BID PO
     Route: 048

REACTIONS (3)
  - BLOOD URINE PRESENT [None]
  - GLOSSODYNIA [None]
  - PLATELET COUNT DECREASED [None]
